FAERS Safety Report 10512427 (Version 4)
Quarter: 2014Q4

REPORT INFORMATION
  Report Type: Report from Study
  Country: CA (occurrence: CA)
  Receive Date: 20141010
  Receipt Date: 20141029
  Transmission Date: 20150528
  Serious: Yes (Death, Hospitalization)
  Sender: FDA-Public Use
  Company Number: PHHY2014CA132462

PATIENT
  Age: 70 Year
  Sex: Male

DRUGS (3)
  1. CLOZARIL [Suspect]
     Active Substance: CLOZAPINE
     Indication: SCHIZOPHRENIA
     Route: 048
     Dates: start: 20140318
  2. CLOZARIL [Suspect]
     Active Substance: CLOZAPINE
     Indication: RESTLESSNESS
  3. CLOZARIL [Suspect]
     Active Substance: CLOZAPINE
     Indication: AGITATION

REACTIONS (27)
  - Secretion discharge [Unknown]
  - Epilepsy [Unknown]
  - Abnormal dreams [Unknown]
  - Chills [Unknown]
  - Blood pressure increased [Unknown]
  - Atrioventricular block second degree [Unknown]
  - Mental impairment [Unknown]
  - Device deployment issue [Unknown]
  - Inappropriate affect [Unknown]
  - Pain [Unknown]
  - Pyrexia [Unknown]
  - Electrocardiogram abnormal [Unknown]
  - Device extrusion [Unknown]
  - Lung disorder [Unknown]
  - Asthenia [Unknown]
  - Dyspnoea [Unknown]
  - Postoperative wound infection [Unknown]
  - General physical health deterioration [Unknown]
  - Aggression [Unknown]
  - Device related infection [Unknown]
  - Heart rate increased [Unknown]
  - Erythema [Unknown]
  - Death [Fatal]
  - Bundle branch block right [Unknown]
  - Endocarditis [Unknown]
  - Sepsis [Unknown]
  - Speech disorder [Unknown]

NARRATIVE: CASE EVENT DATE: 20141001
